FAERS Safety Report 11877584 (Version 1)
Quarter: 2015Q4

REPORT INFORMATION
  Report Type: Spontaneous
  Country: None (occurrence: US)
  Receive Date: 20151230
  Receipt Date: 20151230
  Transmission Date: 20160305
  Serious: Yes (Hospitalization, Other)
  Sender: FDA-Public Use
  Company Number: US-MYLANLABS-2015M1047275

PATIENT

DRUGS (1)
  1. METFORMIN [Suspect]
     Active Substance: METFORMIN HYDROCHLORIDE
     Indication: PRODUCT USED FOR UNKNOWN INDICATION
     Dosage: 270 G
     Route: 048

REACTIONS (7)
  - Multi-organ failure [Recovered/Resolved]
  - Disseminated intravascular coagulation [Recovered/Resolved]
  - Intentional overdose [Recovered/Resolved]
  - Acute kidney injury [Recovered/Resolved]
  - Shock [Recovered/Resolved]
  - Respiratory failure [Recovered/Resolved]
  - Lactic acidosis [Recovered/Resolved]
